FAERS Safety Report 13494891 (Version 4)
Quarter: 2018Q4

REPORT INFORMATION
  Report Type: Spontaneous
  Country: US (occurrence: US)
  Receive Date: 20170428
  Receipt Date: 20181025
  Transmission Date: 20190204
  Serious: Yes (Hospitalization)
  Sender: FDA-Public Use
  Company Number: US-PFIZER INC-2017182277

PATIENT
  Age: 69 Year
  Sex: Female
  Weight: 66 kg

DRUGS (10)
  1. SINGULAIR [Concomitant]
     Active Substance: MONTELUKAST SODIUM
     Dosage: 10 MG, DAILY
  2. MACROBID [Concomitant]
     Active Substance: NITROFURANTOIN\NITROFURANTOIN MONOHYDRATE
     Dosage: UNK, 1X/DAY (MCR100 DAILY AT NIGHT)
  3. PREDNISONE. [Concomitant]
     Active Substance: PREDNISONE
  4. XELJANZ XR [Suspect]
     Active Substance: TOFACITINIB CITRATE
     Indication: RHEUMATOID ARTHRITIS
     Dosage: 11 MG, 1X/DAY
     Route: 048
  5. CELEBREX [Concomitant]
     Active Substance: CELECOXIB
     Indication: ARTHRITIS
     Dosage: 200 MG, 1X/DAY
     Route: 048
  6. XELJANZ XR [Suspect]
     Active Substance: TOFACITINIB CITRATE
     Dosage: 11 MG, EVERY 3 DAYS
     Route: 048
     Dates: start: 201809
  7. PERCOCET [Concomitant]
     Active Substance: ACETAMINOPHEN\OXYCODONE HYDROCHLORIDE
     Dosage: UNK (10MG)
  8. FOSAMAX [Concomitant]
     Active Substance: ALENDRONATE SODIUM
     Indication: BONE DISORDER
     Dosage: UNK UNK, WEEKLY
  9. LYRICA [Concomitant]
     Active Substance: PREGABALIN
     Indication: HYPOAESTHESIA
     Dosage: 75 MG, 2X/DAY
     Route: 048
  10. CYMBALTA [Concomitant]
     Active Substance: DULOXETINE HYDROCHLORIDE
     Indication: ARTHRITIS
     Dosage: 60 MG, 1X/DAY
     Route: 048

REACTIONS (12)
  - Joint dislocation [Recovering/Resolving]
  - Urinary tract infection [Unknown]
  - Foot deformity [Unknown]
  - Body height decreased [Unknown]
  - Pain [Unknown]
  - Gait disturbance [Unknown]
  - Finger deformity [Unknown]
  - Hand deformity [Unknown]
  - Muscular weakness [Unknown]
  - Intentional product misuse [Unknown]
  - Thinking abnormal [Unknown]
  - Drug ineffective [Unknown]

NARRATIVE: CASE EVENT DATE: 20171223
